FAERS Safety Report 19497741 (Version 1)
Quarter: 2021Q3

REPORT INFORMATION
  Report Type: Spontaneous
  Country: RU (occurrence: RU)
  Receive Date: 20210706
  Receipt Date: 20210706
  Transmission Date: 20211014
  Serious: Yes (Death, Other)
  Sender: FDA-Public Use
  Company Number: RU-UCBSA-2021031820

PATIENT
  Age: 46 Year
  Sex: Male

DRUGS (2)
  1. OXCARBAZEPINE. [Suspect]
     Active Substance: OXCARBAZEPINE
     Indication: PARTIAL SEIZURES WITH SECONDARY GENERALISATION
     Dosage: UNKNOWN DOSE AND FREQUENCY
  2. LACOSAMIDE. [Suspect]
     Active Substance: LACOSAMIDE
     Indication: PARTIAL SEIZURES WITH SECONDARY GENERALISATION
     Dosage: UNKNOWN DOSE AND FREQUENCY

REACTIONS (3)
  - Sinus tachycardia [Unknown]
  - Sudden unexplained death in epilepsy [Fatal]
  - Drug resistance [Unknown]
